FAERS Safety Report 10250829 (Version 2)
Quarter: 2014Q3

REPORT INFORMATION
  Report Type: Spontaneous
  Country: FR (occurrence: FR)
  Receive Date: 20140620
  Receipt Date: 20140708
  Transmission Date: 20150326
  Serious: Yes (Death, Other)
  Sender: FDA-Public Use
  Company Number: FR-VERTEX PHARMACEUTICALS INC-2014-002799

PATIENT

DRUGS (1)
  1. INCIVO [Suspect]
     Active Substance: TELAPREVIR
     Indication: HEPATITIS C
     Dosage: UNK
     Route: 048
     Dates: start: 20110915, end: 20130915

REACTIONS (8)
  - Skin reaction [Unknown]
  - Adverse reaction [Unknown]
  - Anaemia [Unknown]
  - Drug reaction with eosinophilia and systemic symptoms [Unknown]
  - Gastrointestinal haemorrhage [Fatal]
  - Thrombocytopenia [Unknown]
  - Death [Fatal]
  - Pancreatitis [Fatal]
